FAERS Safety Report 21599811 (Version 1)
Quarter: 2022Q4

REPORT INFORMATION
  Report Type: Spontaneous
  Country: AU (occurrence: AU)
  Receive Date: 20221115
  Receipt Date: 20221115
  Transmission Date: 20230113
  Serious: Yes (Other)
  Sender: FDA-Public Use
  Company Number: AU-BAUSCH-BL-2022-014334

PATIENT
  Age: 70 Year
  Sex: Female

DRUGS (13)
  1. PREDNISOLONE [Suspect]
     Active Substance: PREDNISOLONE
     Indication: Ovarian cancer
     Route: 065
  2. GEMCITABINE [Suspect]
     Active Substance: GEMCITABINE
     Indication: Ovarian cancer
     Route: 065
  3. VINORELBINE [Suspect]
     Active Substance: VINORELBINE TARTRATE
     Indication: Ovarian cancer
     Route: 065
  4. DOXORUBICIN [Suspect]
     Active Substance: DOXORUBICIN
     Indication: Ovarian cancer
     Route: 065
  5. VINCRISTINE [Suspect]
     Active Substance: VINCRISTINE
     Indication: Ovarian cancer
     Route: 065
  6. EVEROLIMUS [Suspect]
     Active Substance: EVEROLIMUS
     Indication: Ovarian cancer
     Route: 065
  7. EVEROLIMUS [Suspect]
     Active Substance: EVEROLIMUS
     Route: 065
  8. RITUXIMAB [Suspect]
     Active Substance: RITUXIMAB
     Indication: Ovarian cancer
     Route: 065
  9. CARBOPLATIN [Suspect]
     Active Substance: CARBOPLATIN
     Indication: Ovarian cancer
     Route: 065
  10. ETOPOSIDE [Suspect]
     Active Substance: ETOPOSIDE
     Indication: Ovarian cancer
     Route: 065
  11. CYCLOPHOSPHAMIDE [Suspect]
     Active Substance: CYCLOPHOSPHAMIDE
     Indication: Ovarian cancer
     Route: 065
  12. PACLITAXEL [Suspect]
     Active Substance: PACLITAXEL
     Indication: Ovarian cancer
     Route: 065
  13. CISPLATIN [Suspect]
     Active Substance: CISPLATIN
     Indication: Ovarian cancer
     Route: 065

REACTIONS (3)
  - Disease progression [Unknown]
  - Disease recurrence [Unknown]
  - Drug ineffective [Unknown]
